FAERS Safety Report 8990157 (Version 1)
Quarter: 2012Q4

REPORT INFORMATION
  Report Type: 
  Country: JP (occurrence: JP)
  Receive Date: 20121228
  Receipt Date: 20121228
  Transmission Date: 20130627
  Serious: Yes (Death)
  Sender: FDA-Public Use
  Company Number: JP-PFIZER INC-2012330312

PATIENT
  Age: 11 Year
  Sex: Female

DRUGS (2)
  1. EPIPEN [Suspect]
     Indication: ACUTE ALLERGIC REACTION
     Dosage: UNK
     Route: 030
     Dates: start: 20121220, end: 20121220
  2. EPIPEN [Suspect]
     Indication: ANAPHYLACTIC SHOCK

REACTIONS (1)
  - Drug ineffective [Fatal]
